FAERS Safety Report 24638071 (Version 1)
Quarter: 2024Q4

REPORT INFORMATION
  Report Type: Spontaneous
  Country: FR (occurrence: FR)
  Receive Date: 20241119
  Receipt Date: 20241119
  Transmission Date: 20250114
  Serious: Yes (Death, Hospitalization)
  Sender: ELI LILLY AND COMPANY
  Company Number: None

PATIENT
  Age: 15 Year
  Sex: Male
  Weight: 36 kg

DRUGS (5)
  1. OLUMIANT [Suspect]
     Active Substance: BARICITINIB
     Indication: Gastrointestinal disorder
     Dosage: 1 MG, BID (EVERY 12 HOURS)
     Route: 048
     Dates: start: 20211129, end: 202403
  2. INFLIXIMAB [Suspect]
     Active Substance: INFLIXIMAB
     Indication: Gastrointestinal disorder
     Dosage: 300 MG, OTHER (EVERY 15 DAYS)
     Route: 042
     Dates: start: 202404
  3. ENTYVIO [Suspect]
     Active Substance: VEDOLIZUMAB
     Indication: Gastrointestinal disorder
     Dosage: 300 MG, OTHER (EVERY 15 DAYS)
     Route: 042
     Dates: start: 202404
  4. RUXOLITINIB [Suspect]
     Active Substance: RUXOLITINIB
     Indication: Immune reconstitution inflammatory syndrome
     Dosage: UNK UNK, UNKNOWN
     Route: 048
     Dates: start: 20240927
  5. SOLU-MEDROL [Concomitant]
     Active Substance: METHYLPREDNISOLONE SODIUM SUCCINATE
     Indication: Product used for unknown indication

REACTIONS (3)
  - Cardiac arrest [Fatal]
  - Bronchopulmonary aspergillosis [Not Recovered/Not Resolved]
  - Off label use [Unknown]

NARRATIVE: CASE EVENT DATE: 20240502
